FAERS Safety Report 13689493 (Version 1)
Quarter: 2017Q2

REPORT INFORMATION
  Report Type: Spontaneous
  Country: US (occurrence: US)
  Receive Date: 20170626
  Receipt Date: 20170626
  Transmission Date: 20170830
  Serious: No
  Sender: FDA-Public Use
  Company Number: US-GLAXOSMITHKLINE-US2017097183

PATIENT
  Age: 65 Year
  Sex: Male

DRUGS (10)
  1. ZOLOFT [Concomitant]
     Active Substance: SERTRALINE HYDROCHLORIDE
  2. NEURONTIN [Concomitant]
     Active Substance: GABAPENTIN
  3. RANITIDINE HYDROCHLORIDE TABLET [Suspect]
     Active Substance: RANITIDINE HYDROCHLORIDE
     Indication: HIATUS HERNIA
     Dosage: 150 MG, QID
     Dates: start: 201706
  4. ZANTAC [Suspect]
     Active Substance: RANITIDINE HYDROCHLORIDE
     Indication: PRODUCT USED FOR UNKNOWN INDICATION
     Dosage: 150 MG, TID
  5. ASPIRIN (BABY) [Concomitant]
     Active Substance: ASPIRIN
  6. HYDROCHLOROTHIAZIDE. [Concomitant]
     Active Substance: HYDROCHLOROTHIAZIDE
  7. CELEBREX [Concomitant]
     Active Substance: CELECOXIB
  8. MOBIC [Concomitant]
     Active Substance: MELOXICAM
  9. HYDROXYZINE HYDROCHLORIDE. [Concomitant]
     Active Substance: HYDROXYZINE HYDROCHLORIDE
  10. VALIUM [Concomitant]
     Active Substance: DIAZEPAM

REACTIONS (7)
  - Dyspepsia [Unknown]
  - Overdose [Unknown]
  - Product substitution issue [Unknown]
  - Abdominal pain upper [Unknown]
  - Prescribed overdose [Unknown]
  - Drug ineffective for unapproved indication [Unknown]
  - Product use in unapproved indication [Unknown]

NARRATIVE: CASE EVENT DATE: 201706
